FAERS Safety Report 6857120-1 (Version None)
Quarter: 2010Q3

REPORT INFORMATION
  Report Type: 
  Country: None (occurrence: None)
  Receive Date: 20100719
  Receipt Date: 20100709
  Transmission Date: 20110219
  Serious: Yes (Hospitalization)
  Sender: FDA-Public Use
  Company Number: B0664899A

PATIENT
  Sex: Male

DRUGS (4)
  1. ZANTAC [Suspect]
     Dosage: 200MG PER DAY
     Route: 065
     Dates: start: 20100509, end: 20100705
  2. ROCEPHIN [Concomitant]
     Indication: PNEUMONIA
     Dosage: 2G PER DAY
     Dates: start: 20100427, end: 20100501
  3. MINOCYCLINE HYDROCHLORIDE [Concomitant]
     Indication: PNEUMONIA
     Dosage: 200MG PER DAY
     Dates: start: 20100502, end: 20100506
  4. PENTCILLIN [Concomitant]
     Indication: PNEUMONIA
     Dosage: 4G PER DAY
     Dates: start: 20100507, end: 20100511

REACTIONS (1)
  - STEVENS-JOHNSON SYNDROME [None]
